FAERS Safety Report 23090065 (Version 1)
Quarter: 2023Q4

REPORT INFORMATION
  Report Type: Spontaneous
  Country: CN (occurrence: CN)
  Receive Date: 20231020
  Receipt Date: 20231020
  Transmission Date: 20240110
  Serious: Yes (Other)
  Sender: FDA-Public Use
  Company Number: None

PATIENT
  Age: 57 Year
  Sex: Female
  Weight: 60 kg

DRUGS (5)
  1. GLYCERIN\LECITHIN\MEDIUM-CHAIN TRIGLYCERIDES\SOYBEAN OIL [Suspect]
     Active Substance: GLYCERIN\LECITHIN\MEDIUM-CHAIN TRIGLYCERIDES\SOYBEAN OIL
     Indication: Nutritional supplementation
     Dosage: 250 MILLILITERS (ML), ONCE DAILY, DOSAGE FORM: INJECTION
     Route: 041
     Dates: start: 20230902, end: 20230902
  2. SODIUM CHLORIDE [Suspect]
     Active Substance: SODIUM CHLORIDE
     Indication: Medication dilution
     Dosage: STRENGTH: 0.9 %, 250 MILLILITERS (ML) (USED TO DILUTE 80 MG METHYPREDNISOLONE), UNSPECIFIED FREQUENC
     Route: 041
     Dates: start: 20230902
  3. METHYLPREDNISOLONE [Suspect]
     Active Substance: METHYLPREDNISOLONE
     Dosage: 80 MILLIGRAMS (MG), UNSPECIFIED FREQUENCY
     Route: 041
     Dates: start: 20230902
  4. EPINEPHRINE [Suspect]
     Active Substance: EPINEPHRINE
     Dosage: 0.5 MILLIGRAMS (MG), UNSPECIFIED FREQUENCY
     Route: 030
     Dates: start: 20230902
  5. EPINEPHRINE [Suspect]
     Active Substance: EPINEPHRINE
     Dosage: 0.5 MILLIGRAMS (MG), UNSPECIFIED FREQUENCY
     Route: 030
     Dates: start: 20230902

REACTIONS (7)
  - Tremor [Unknown]
  - Chills [Recovering/Resolving]
  - Peripheral swelling [Unknown]
  - Pain in extremity [Unknown]
  - Heart rate increased [Unknown]
  - Sinus tachycardia [Unknown]
  - Dyspnoea [Recovering/Resolving]

NARRATIVE: CASE EVENT DATE: 20230902
